FAERS Safety Report 6921323-8 (Version None)
Quarter: 2010Q3

REPORT INFORMATION
  Report Type: 
  Country: None (occurrence: None)
  Receive Date: 20100812
  Receipt Date: 20100805
  Transmission Date: 20110219
  Serious: Yes (Life-Threatening)
  Sender: FDA-Public Use
  Company Number: B0669633A

PATIENT
  Age: 73 Year
  Sex: Male

DRUGS (1)
  1. AUGMENTIN XR [Suspect]
     Indication: URINARY TRACT INFECTION
     Route: 048
     Dates: start: 20100710, end: 20100710

REACTIONS (1)
  - ANAPHYLACTIC SHOCK [None]
